FAERS Safety Report 8130327-1 (Version None)
Quarter: 2012Q1

REPORT INFORMATION
  Report Type: 
  Country: None (occurrence: None)
  Receive Date: 20120210
  Receipt Date: 20120206
  Transmission Date: 20120608
  Serious: Yes (Death)
  Sender: FDA-Public Use
  Company Number: PHHY2012MX010079

PATIENT
  Sex: Female

DRUGS (1)
  1. STALEVO 100 [Suspect]
     Indication: PARKINSON'S DISEASE
     Dosage: 200 MG/150MG/37.5 MG, THREE DOSAGE DAILY
     Route: 048
     Dates: start: 20070929

REACTIONS (1)
  - MYOCARDIAL INFARCTION [None]
